FAERS Safety Report 5402429-1 (Version None)
Quarter: 2007Q3

REPORT INFORMATION
  Report Type: 
  Country: None (occurrence: None)
  Receive Date: 20070730
  Receipt Date: 20070730
  Transmission Date: 20080115
  Serious: Yes (Other)
  Sender: FDA-Public Use
  Company Number: None

PATIENT
  Age: 46 Year
  Sex: Female
  Weight: 58.0604 kg

DRUGS (1)
  1. ALDARA [Suspect]
     Indication: ANOGENITAL WARTS
     Dosage: 5% 3X/WEEK TOP
     Route: 061
     Dates: start: 20070415, end: 20070601

REACTIONS (6)
  - APPLICATION SITE PAIN [None]
  - BURNING SENSATION [None]
  - ERYTHEMA [None]
  - GENITAL PAIN [None]
  - PAIN [None]
  - SWELLING [None]
